FAERS Safety Report 25183070 (Version 1)
Quarter: 2025Q2

REPORT INFORMATION
  Report Type: Spontaneous
  Country: US (occurrence: US)
  Receive Date: 20250410
  Receipt Date: 20250410
  Transmission Date: 20250717
  Serious: Yes (Death, Other)
  Sender: PROCTER AND GAMBLE
  Company Number: US-PROCTER+GAMBLE-PH25002663

PATIENT
  Age: 45 Year
  Sex: Male

DRUGS (10)
  1. DIPHENHYDRAMINE HYDROCHLORIDE [Suspect]
     Active Substance: DIPHENHYDRAMINE HYDROCHLORIDE
  2. KETAMINE [Suspect]
     Active Substance: KETAMINE
  3. NORKETAMINE [Suspect]
     Active Substance: NORKETAMINE
  4. AMPHETAMINE [Suspect]
     Active Substance: AMPHETAMINE
  5. MIDOMAFETAMINE [Suspect]
     Active Substance: MIDOMAFETAMINE
  6. TENAMFETAMINE [Suspect]
     Active Substance: TENAMFETAMINE
  7. MDE [Suspect]
     Active Substance: MDE
  8. TEMAZEPAM [Suspect]
     Active Substance: TEMAZEPAM
  9. NAPROXEN [Suspect]
     Active Substance: NAPROXEN
  10. TEMAZEPAM [Suspect]
     Active Substance: TEMAZEPAM

REACTIONS (6)
  - Completed suicide [Fatal]
  - Toxicity to various agents [Fatal]
  - Abnormal behaviour [Fatal]
  - Gun shot wound [Fatal]
  - Drug abuse [Fatal]
  - Postmortem blood drug level abnormal [Fatal]
